FAERS Safety Report 12108615 (Version 1)
Quarter: 2016Q1

REPORT INFORMATION
  Report Type: Spontaneous
  Country: US (occurrence: US)
  Receive Date: 20160224
  Receipt Date: 20160224
  Transmission Date: 20160526
  Serious: No
  Sender: FDA-Public Use
  Company Number: US-BIOGEN-2016BI00175775

PATIENT
  Sex: Male

DRUGS (1)
  1. TECFIDERA [Suspect]
     Active Substance: DIMETHYL FUMARATE
     Indication: MULTIPLE SCLEROSIS
     Dates: end: 20131015

REACTIONS (5)
  - Mobility decreased [Unknown]
  - Abdominal discomfort [Unknown]
  - Rash [Unknown]
  - Diarrhoea [Unknown]
  - Patient dissatisfaction with treatment [Unknown]
